FAERS Safety Report 9144367 (Version 1)
Quarter: 2013Q1

REPORT INFORMATION
  Report Type: Report from Study
  Country: FR (occurrence: FR)
  Receive Date: 20130306
  Receipt Date: 20130306
  Transmission Date: 20140127
  Serious: Yes (Hospitalization, Other)
  Sender: FDA-Public Use
  Company Number: FR-ROCHE-1195526

PATIENT
  Age: 72 Year
  Sex: Female

DRUGS (20)
  1. TOCILIZUMAB [Suspect]
     Indication: RHEUMATOID ARTHRITIS
     Route: 041
     Dates: start: 20100707, end: 20120130
  2. TOCILIZUMAB [Suspect]
     Route: 041
     Dates: start: 20100804
  3. TOCILIZUMAB [Suspect]
     Route: 041
     Dates: start: 20100902
  4. TOCILIZUMAB [Suspect]
     Route: 041
     Dates: start: 20101001
  5. TOCILIZUMAB [Suspect]
     Route: 041
     Dates: start: 20101130
  6. TOCILIZUMAB [Suspect]
     Route: 041
     Dates: start: 20101227
  7. TOCILIZUMAB [Suspect]
     Route: 041
     Dates: start: 20110125
  8. TOCILIZUMAB [Suspect]
     Route: 041
     Dates: start: 20110223
  9. TOCILIZUMAB [Suspect]
     Route: 041
     Dates: start: 20110418
  10. TOCILIZUMAB [Suspect]
     Route: 041
     Dates: start: 20110518
  11. TOCILIZUMAB [Suspect]
     Route: 041
     Dates: start: 20110615
  12. TOCILIZUMAB [Suspect]
     Route: 041
     Dates: start: 20110713
  13. TOCILIZUMAB [Suspect]
     Route: 041
     Dates: start: 20110810
  14. TOCILIZUMAB [Suspect]
     Route: 041
     Dates: start: 20110907
  15. TOCILIZUMAB [Suspect]
     Route: 041
     Dates: start: 20111005
  16. TOCILIZUMAB [Suspect]
     Route: 041
     Dates: start: 20111102
  17. TOCILIZUMAB [Suspect]
     Route: 041
     Dates: start: 20111130
  18. TOCILIZUMAB [Suspect]
     Route: 041
     Dates: start: 20120102
  19. TOCILIZUMAB [Suspect]
     Route: 041
     Dates: start: 20120130
  20. METHOTREXATE [Concomitant]
     Route: 065
     Dates: end: 20120102

REACTIONS (8)
  - Papule [Recovered/Resolved with Sequelae]
  - Knee arthroplasty [Recovered/Resolved]
  - Headache [Recovered/Resolved]
  - Infection [Recovered/Resolved]
  - Hypercholesterolaemia [Not Recovered/Not Resolved]
  - Neutropenia [Recovered/Resolved]
  - Abdominal pain [Recovered/Resolved]
  - Diarrhoea [Recovered/Resolved]
